FAERS Safety Report 5621301-5 (Version None)
Quarter: 2008Q1

REPORT INFORMATION
  Report Type: 
  Country: None (occurrence: None)
  Receive Date: 20080129
  Receipt Date: 20080115
  Transmission Date: 20080703
  Serious: Yes (Death)
  Sender: FDA-Public Use
  Company Number: B0505167A

PATIENT

DRUGS (3)
  1. LAMIVUDINE [Suspect]
     Indication: HEPATITIS B
     Dosage: ORAL
     Route: 048
  2. HEPATITIS B IMMUNOGLOBUL [Concomitant]
  3. CORTICOSTEROID [Concomitant]

REACTIONS (4)
  - DISEASE RECURRENCE [None]
  - DRUG RESISTANCE [None]
  - HEPATIC FAILURE [None]
  - HEPATITIS B VIRUS [None]
